FAERS Safety Report 23178326 (Version 2)
Quarter: 2023Q4

REPORT INFORMATION
  Report Type: Report from Study
  Country: TR (occurrence: TR)
  Receive Date: 20231113
  Receipt Date: 20231117
  Transmission Date: 20240109
  Serious: Yes (Other)
  Sender: FDA-Public Use
  Company Number: TR-009507513-2311TUR002066

PATIENT
  Age: 64 Year
  Sex: Male
  Weight: 80 kg

DRUGS (22)
  1. SACITUZUMAB GOVITECAN-HZIY [Suspect]
     Active Substance: SACITUZUMAB GOVITECAN-HZIY
     Indication: Non-small cell lung cancer metastatic
     Dosage: 10 MG/KG ON DAYS 1 AND 8, Q3W
     Route: 042
     Dates: start: 20230331, end: 20231023
  2. PEMBROLIZUMAB [Suspect]
     Active Substance: PEMBROLIZUMAB
     Indication: Non-small cell lung cancer metastatic
     Dosage: 200 MG, Q3WK
     Route: 042
     Dates: start: 20230331, end: 20231016
  3. PLETAL [Concomitant]
     Active Substance: CILOSTAZOL
     Indication: Peripheral arterial occlusive disease
     Dosage: [4]  100 MG DAILY, FREQ: QD
     Route: 048
     Dates: start: 202301
  4. PLAVIX [Concomitant]
     Active Substance: CLOPIDOGREL BISULFATE
     Indication: Peripheral arterial occlusive disease
     Dosage: [117]  75 MG DAILY, FREQ: QD
     Route: 048
     Dates: start: 20230808
  5. ASPIRIN [Concomitant]
     Active Substance: ASPIRIN
     Indication: Peripheral arterial occlusive disease
     Dosage: [128]  80 MG DAILY, FREQ: QD
     Route: 048
     Dates: start: 20230911
  6. CEFTINEX [Concomitant]
     Indication: Upper respiratory tract infection
     Dosage: [144]  600 MG DAILY, FREQ: QD
     Route: 048
     Dates: start: 20231011, end: 20231021
  7. CEFTINEX [Concomitant]
     Indication: Tonsillitis
  8. DEKSAMET [DEXAMETHASONE] [Concomitant]
     Indication: Premedication
     Dosage: [150]  8 MG DAILY, FREQ: ONCE
     Route: 042
     Dates: start: 20231023, end: 20231023
  9. ZYGOSIS [Concomitant]
     Indication: Premedication
     Dosage: [151]  40 MG DAILY, FREQ: ONCE
     Route: 042
     Dates: start: 20231023, end: 20231023
  10. AVIJECT [Concomitant]
     Indication: Premedication
     Dosage: [152]  45.5 MG DAILY, FREQ: ONCE
     Route: 042
     Dates: start: 20231023, end: 20231023
  11. ONDANSETRON HYDROCHLORIDE [Concomitant]
     Active Substance: ONDANSETRON HYDROCHLORIDE
     Indication: Premedication
     Dosage: [153]  8 MG DAILY, FREQ: ONCE
     Route: 042
     Dates: start: 20231023, end: 20231023
  12. ONDANSETRON HYDROCHLORIDE [Concomitant]
     Active Substance: ONDANSETRON HYDROCHLORIDE
     Dosage: [162]  4 MG DAILY, FREQ: ONCE
     Route: 042
     Dates: start: 20231104, end: 20231104
  13. SODIUM CHLORIDE [Concomitant]
     Active Substance: SODIUM CHLORIDE
     Indication: Premedication
     Dosage: [154]  100 BAG DAILY, FREQ: ONCE
     Route: 042
     Dates: start: 20231023, end: 20231023
  14. SODIUM CHLORIDE [Concomitant]
     Active Substance: SODIUM CHLORIDE
     Dosage: [164]  500 BAG DAILY, FREQ: ONCE
     Route: 042
     Dates: start: 20231104, end: 20231104
  15. HUMAN RED BLOOD CELL [Concomitant]
     Active Substance: HUMAN RED BLOOD CELL
     Indication: Anaemia
     Dosage: [155]  1 BAG DAILY, FREQ: ONCE
     Route: 042
     Dates: start: 20231023, end: 20231023
  16. HUMAN RED BLOOD CELL [Concomitant]
     Active Substance: HUMAN RED BLOOD CELL
     Dosage: [156]  1 BAG DAILY, FREQ: ONCE
     Route: 042
     Dates: start: 20231025, end: 20231025
  17. HUMAN RED BLOOD CELL [Concomitant]
     Active Substance: HUMAN RED BLOOD CELL
     Dosage: [160]  1 BAG DAILY, FREQ: ONCE
     Route: 042
     Dates: start: 20231104, end: 20231104
  18. MODET [Concomitant]
     Indication: Haemorrhoidal haemorrhage
     Dosage: [157]  2000 MG DAILY, FREQ: BID
     Route: 048
     Dates: start: 20231026
  19. LOCAFEN [Concomitant]
     Indication: Haemorrhoidal haemorrhage
     Dosage: [158]  2 APPLICATION DAILY, FREQ: BID
     Route: 061
     Dates: start: 20231026
  20. PROCTO GLYVENOL [LIDOCAINE;TRIBENOSIDE] [Concomitant]
     Indication: Haemorrhoidal haemorrhage
     Dosage: [159]  2 APPLICATION DAILY, FREQ: BID
     Route: 061
     Dates: start: 20231026
  21. PAROL [Concomitant]
     Active Substance: ACETAMINOPHEN
     Indication: Premedication
     Dosage: [161]  20 MG DAILY, FREQ: BID
     Route: 042
     Dates: start: 20231104, end: 20231104
  22. METOCLOPRAMIDE [Concomitant]
     Active Substance: METOCLOPRAMIDE
     Indication: Premedication
     Dosage: [163]  10 MG DAILY, FREQ: ONCE
     Route: 042
     Dates: start: 20231104, end: 20231104

REACTIONS (1)
  - Cerebral infarction [Recovering/Resolving]

NARRATIVE: CASE EVENT DATE: 20231104
